FAERS Safety Report 10149247 (Version 2)
Quarter: 2014Q2

REPORT INFORMATION
  Report Type: Spontaneous
  Country: GB (occurrence: None)
  Receive Date: 20140430
  Receipt Date: 20140505
  Transmission Date: 20141212
  Serious: Yes (Death, Hospitalization)
  Sender: FDA-Public Use
  Company Number: AUR-APL-2014-05156

PATIENT
  Age: 2 Year
  Sex: Female

DRUGS (2)
  1. AMOXICILLIN + CLAVULANIC ACID [Suspect]
     Indication: PRODUCT USED FOR UNKNOWN INDICATION
  2. AZITHROMYCIN [Suspect]
     Indication: PRODUCT USED FOR UNKNOWN INDICATION

REACTIONS (2)
  - Drug reaction with eosinophilia and systemic symptoms [None]
  - Pulmonary haemorrhage [None]
